FAERS Safety Report 10870956 (Version 3)
Quarter: 2016Q1

REPORT INFORMATION
  Report Type: Report from Study
  Country: BR (occurrence: BR)
  Receive Date: 20150226
  Receipt Date: 20160325
  Transmission Date: 20160525
  Serious: Yes (Other)
  Sender: FDA-Public Use
  Company Number: PHHY2015BR022511

PATIENT
  Sex: Female
  Weight: 73 kg

DRUGS (4)
  1. SANDOSTATIN LAR DEPOT [Suspect]
     Active Substance: OCTREOTIDE ACETATE
     Indication: ACROMEGALY
     Dosage: 1 DF (20 MG AMPOULE), EVERY 28 DAYS
     Route: 030
     Dates: end: 201408
  2. SANDOSTATIN LAR DEPOT [Suspect]
     Active Substance: OCTREOTIDE ACETATE
     Dosage: 1 DF (30 MG AMPOULE), EVERY 28 DAYS
     Route: 030
  3. METFORMIN [Concomitant]
     Active Substance: METFORMIN HYDROCHLORIDE
     Indication: DIABETES MELLITUS
     Dosage: 3 DF, QD
     Route: 048
     Dates: start: 2005
  4. SINVASTATINA [Concomitant]
     Active Substance: SIMVASTATIN
     Indication: PRODUCT USED FOR UNKNOWN INDICATION
     Dosage: 1 DF, QHS
     Route: 048
     Dates: start: 2008

REACTIONS (15)
  - Feeling abnormal [Recovered/Resolved]
  - Nasopharyngitis [Unknown]
  - Frustration tolerance decreased [Unknown]
  - Increased bronchial secretion [Recovered/Resolved]
  - Neoplasm [Unknown]
  - Mental impairment [Recovered/Resolved]
  - Nasal discharge discolouration [Recovered/Resolved]
  - Headache [Unknown]
  - Blindness [Unknown]
  - Hypoaesthesia [Not Recovered/Not Resolved]
  - Rhinorrhoea [Recovered/Resolved]
  - Memory impairment [Recovered/Resolved]
  - Increased viscosity of upper respiratory secretion [Recovered/Resolved]
  - Swelling [Not Recovered/Not Resolved]
  - Crying [Unknown]

NARRATIVE: CASE EVENT DATE: 2006
